FAERS Safety Report 21673542 (Version 5)
Quarter: 2023Q1

REPORT INFORMATION
  Report Type: Report from Study
  Country: US (occurrence: US)
  Receive Date: 20221202
  Receipt Date: 20230206
  Transmission Date: 20230417
  Serious: Yes (Other)
  Sender: FDA-Public Use
  Company Number: US-002147023-NVSC2022US277215

PATIENT
  Age: 70 Year
  Sex: Male

DRUGS (1)
  1. LEQVIO [Suspect]
     Active Substance: INCLISIRAN SODIUM
     Indication: Product used for unknown indication
     Dosage: UNK
     Route: 058
     Dates: start: 20220901

REACTIONS (4)
  - Nephrolithiasis [Unknown]
  - Renal cyst [Unknown]
  - Blood triglycerides increased [Unknown]
  - Injection site pain [Unknown]

NARRATIVE: CASE EVENT DATE: 20220901
